FAERS Safety Report 17303148 (Version 1)
Quarter: 2020Q1

REPORT INFORMATION
  Report Type: Other
  Country: LC (occurrence: LC)
  Receive Date: 20200122
  Receipt Date: 20200122
  Transmission Date: 20200409
  Serious: Yes (Hospitalization)
  Sender: FDA-Public Use
  Company Number: LC-VITRUVIAS THERAPEUTICS-2079304

PATIENT
  Age: 74 Year
  Sex: Female

DRUGS (2)
  1. PROPAFENONE HYDROCHLORIDE. [Suspect]
     Active Substance: PROPAFENONE HYDROCHLORIDE
  2. AMIODARONE HYDROCHLORIDE. [Suspect]
     Active Substance: AMIODARONE HYDROCHLORIDE

REACTIONS (2)
  - Sinus bradycardia [Recovered/Resolved]
  - Nodal arrhythmia [Recovered/Resolved]
